FAERS Safety Report 4336270-8 (Version None)
Quarter: 2004Q2

REPORT INFORMATION
  Report Type: 
  Country: None (occurrence: None)
  Receive Date: 20040407
  Receipt Date: 20040318
  Transmission Date: 20050107
  Serious: Yes (Hospitalization, Other)
  Sender: FDA-Public Use
  Company Number: US_0403101730

PATIENT
  Age: 22 Year
  Sex: Female

DRUGS (3)
  1. HUMULIN R [Suspect]
     Dates: start: 19920101, end: 19960101
  2. HUMULIN L [Suspect]
     Indication: DIABETES MELLITUS INSULIN-DEPENDENT
     Dates: start: 19920101, end: 20020101
  3. HUMALOG [Suspect]
     Indication: DIABETES MELLITUS INSULIN-DEPENDENT

REACTIONS (6)
  - CEREBROVASCULAR ACCIDENT [None]
  - DIABETES MELLITUS INADEQUATE CONTROL [None]
  - DIABETIC KETOACIDOSIS [None]
  - MEDICATION ERROR [None]
  - MYOCARDIAL INFARCTION [None]
  - VISUAL DISTURBANCE [None]
